FAERS Safety Report 17347186 (Version 1)
Quarter: 2020Q1

REPORT INFORMATION
  Report Type: Spontaneous
  Country: US (occurrence: US)
  Receive Date: 20200130
  Receipt Date: 20200130
  Transmission Date: 20200409
  Serious: No
  Sender: FDA-Public Use
  Company Number: US-JNJFOC-20200140099

PATIENT
  Age: 34 Year
  Sex: Female

DRUGS (1)
  1. SPRAVATO [Suspect]
     Active Substance: ESKETAMINE
     Indication: PRODUCT USED FOR UNKNOWN INDICATION
     Dosage: UNSURE WHEN GIVING LOT NUMBER IF 1906214 OR 19D6214
     Dates: start: 20200121

REACTIONS (9)
  - Sneezing [Unknown]
  - Flank pain [Unknown]
  - Headache [Recovering/Resolving]
  - Dyspnoea [Unknown]
  - Vomiting [Not Recovered/Not Resolved]
  - Rhinorrhoea [Unknown]
  - Product quality issue [Unknown]
  - Nausea [Unknown]
  - Sinus congestion [Unknown]

NARRATIVE: CASE EVENT DATE: 20200121
